FAERS Safety Report 22853400 (Version 3)
Quarter: 2023Q4

REPORT INFORMATION
  Report Type: Report from Study
  Country: ES (occurrence: ES)
  Receive Date: 20230823
  Receipt Date: 20231207
  Transmission Date: 20240110
  Serious: Yes (Death, Hospitalization)
  Sender: FDA-Public Use
  Company Number: ES-DSJP-DSE-2023-134192

PATIENT
  Age: 68 Year
  Sex: Female

DRUGS (10)
  1. EDOXABAN [Suspect]
     Active Substance: EDOXABAN
     Indication: Atrial fibrillation
     Dosage: 30 MG, QD
     Route: 048
     Dates: start: 20220507
  2. BISOPROLOL [Concomitant]
     Active Substance: BISOPROLOL\BISOPROLOL FUMARATE
     Indication: Atrial fibrillation
     Dosage: 1.25 MG, BID (EACH 12H)
     Route: 048
     Dates: start: 20210112, end: 20230730
  3. BISOPROLOL [Concomitant]
     Active Substance: BISOPROLOL\BISOPROLOL FUMARATE
     Indication: Myocardial ischaemia
  4. EZETIMIBE\ROSUVASTATIN [Concomitant]
     Active Substance: EZETIMIBE\ROSUVASTATIN
     Indication: Hypercholesterolaemia
     Dosage: 10MG/10MG, QD (EACH 24H)
     Route: 048
     Dates: start: 20210614, end: 20230730
  5. FUROSEMIDE [Concomitant]
     Active Substance: FUROSEMIDE
     Indication: Cardiac failure
     Dosage: 40 MG, BID (EACH 12H)
     Route: 048
     Dates: start: 20190225, end: 20230730
  6. EMPAGLIFLOZIN [Concomitant]
     Active Substance: EMPAGLIFLOZIN
     Indication: Diabetes mellitus
     Dosage: 25 MG, QD (EACH 24H)
     Route: 048
     Dates: start: 20220610, end: 20230730
  7. EMPAGLIFLOZIN [Concomitant]
     Active Substance: EMPAGLIFLOZIN
     Indication: Cardiac failure
  8. FOSTER [Concomitant]
     Active Substance: BECLOMETHASONE\FORMOTEROL
     Indication: Bronchitis
     Dosage: 2 DOSES (200/6MG ), BID (EACH 12H INHALATORY)
     Dates: start: 20190701, end: 20230730
  9. ESOMEPRAZOLE [Concomitant]
     Active Substance: ESOMEPRAZOLE
     Indication: Myocardial ischaemia
     Dosage: 40MG, QD (EACH 12H)
     Route: 048
     Dates: start: 20180215, end: 20230730
  10. IVABRADINA [IVABRADINE] [Concomitant]
     Indication: Cardiac failure
     Dosage: 5MG, QD (EACH 12H)
     Route: 048
     Dates: start: 20230310, end: 20230310

REACTIONS (4)
  - Death [Fatal]
  - Diarrhoea [Recovered/Resolved]
  - Bronchitis [Recovered/Resolved]
  - Cardiac failure [Recovered/Resolved]

NARRATIVE: CASE EVENT DATE: 20230718
